FAERS Safety Report 10218450 (Version 1)
Quarter: 2014Q2

REPORT INFORMATION
  Report Type: Spontaneous
  Country: JP (occurrence: JP)
  Receive Date: 20140605
  Receipt Date: 20140605
  Transmission Date: 20141212
  Serious: Yes (Other)
  Sender: FDA-Public Use
  Company Number: PHHY2014JP067662

PATIENT
  Age: 64 Year
  Sex: Male
  Weight: 73 kg

DRUGS (5)
  1. LAMISIL [Suspect]
     Indication: TINEA PEDIS
     Dosage: 125 MG, DAILY
     Route: 048
     Dates: start: 20140405, end: 20140425
  2. ALONG [Concomitant]
     Dosage: UNK UKN, UNK
     Route: 048
  3. NATRIX [Concomitant]
     Dosage: UNK UKN, UNK
     Route: 048
  4. CRESTOR [Concomitant]
     Dosage: UNK UKN, UNK
     Route: 048
  5. BEZAFIBRATE [Concomitant]
     Dosage: UNK UKN, UNK
     Route: 048

REACTIONS (5)
  - Cellulitis [Not Recovered/Not Resolved]
  - Acute generalised exanthematous pustulosis [Recovering/Resolving]
  - Peripheral swelling [Unknown]
  - Skin erosion [Unknown]
  - Rash pustular [Unknown]
